FAERS Safety Report 12048042 (Version 2)
Quarter: 2016Q2

REPORT INFORMATION
  Report Type: Spontaneous
  Country: FR (occurrence: FR)
  Receive Date: 20160209
  Receipt Date: 20160426
  Transmission Date: 20160815
  Serious: Yes (Hospitalization)
  Sender: FDA-Public Use
  Company Number: FR-UCBSA-2016004093

PATIENT
  Age: 24 Year
  Sex: Male

DRUGS (2)
  1. NEUPRO [Suspect]
     Active Substance: ROTIGOTINE
     Indication: PARKINSON^S DISEASE
     Dosage: 4 MG, ONCE DAILY (QD)
     Route: 062
     Dates: start: 20150225
  2. NEUPRO [Suspect]
     Active Substance: ROTIGOTINE
     Dosage: 2 PATCH OF ROTIGOTINE 4 MG SUPERIMPOSED MOVED ONE ON THE OTHER ONE
     Route: 062
     Dates: start: 201601, end: 201601

REACTIONS (2)
  - Feeling abnormal [Recovered/Resolved]
  - Overdose [Unknown]

NARRATIVE: CASE EVENT DATE: 201601
